FAERS Safety Report 4940499-5 (Version None)
Quarter: 2006Q1

REPORT INFORMATION
  Report Type: 
  Country: None (occurrence: None)
  Receive Date: 20060131
  Receipt Date: 20051222
  Transmission Date: 20060701
  Serious: No
  Sender: FDA-Public Use
  Company Number: 200517962US

PATIENT
  Age: 18 Year
  Sex: Male
  Weight: 80 kg

DRUGS (4)
  1. KETEK [Suspect]
     Indication: SINUSITIS
     Dosage: 800 MG QD PO
     Route: 048
     Dates: start: 20050930, end: 20051003
  2. PSEUDOEPHEDRINE HYDROCHLORIDE, FEXOFENADINE (ALLEGRA-D) [Concomitant]
  3. GUAIFENESIN, DEXTROMETHORPHAN (GUAIFENESIN W/DEXTROMETHORPHAN) [Concomitant]
  4. CLONIDINE [Concomitant]

REACTIONS (4)
  - EYE PAIN [None]
  - NAUSEA [None]
  - SCLERAL DISCOLOURATION [None]
  - VISION BLURRED [None]
